FAERS Safety Report 23628026 (Version 1)
Quarter: 2024Q1

REPORT INFORMATION
  Report Type: Spontaneous
  Country: CN (occurrence: CN)
  Receive Date: 20240313
  Receipt Date: 20240313
  Transmission Date: 20240409
  Serious: Yes (Hospitalization)
  Sender: FDA-Public Use
  Company Number: CN-MYLANLABS-2024M1022634

PATIENT
  Age: 65 Year
  Sex: Male

DRUGS (7)
  1. LIPITOR [Suspect]
     Active Substance: ATORVASTATIN CALCIUM
     Indication: Cerebral infarction
     Dosage: 20 MILLIGRAM, QD
     Route: 045
     Dates: start: 20240215, end: 20240229
  2. DIGOXIN [Concomitant]
     Active Substance: DIGOXIN
     Indication: Atrial fibrillation
     Dosage: 0.125 GRAM, QD
     Route: 045
     Dates: start: 20240216, end: 20240225
  3. Su lai le [Concomitant]
     Indication: Hypertension
     Dosage: 5 MILLIGRAM, QD
     Route: 045
     Dates: start: 20240217, end: 20240220
  4. AMLODIPINE [Concomitant]
     Active Substance: AMLODIPINE BESYLATE
     Indication: Hypertension
     Dosage: 10 MILLIGRAM, QD
     Route: 045
     Dates: start: 20240214, end: 20240224
  5. PIPERACILLIN AND TAZOBACTAM [Concomitant]
     Active Substance: PIPERACILLIN SODIUM\TAZOBACTAM SODIUM
     Indication: Pneumonia
     Dosage: 4.5 GRAM, TID
     Route: 042
     Dates: start: 20240214, end: 20240225
  6. PIPERACILLIN SODIUM\TAZOBACTAM SODIUM [Concomitant]
     Active Substance: PIPERACILLIN SODIUM\TAZOBACTAM SODIUM
     Indication: Pneumonia
     Dosage: 4.5 MILLIGRAM, BID
     Route: 042
     Dates: start: 20240226, end: 20240227
  7. TERAZOSIN [Concomitant]
     Active Substance: TERAZOSIN HYDROCHLORIDE
     Indication: Hypertension
     Dosage: 10 MILLIGRAM, QD
     Route: 045
     Dates: start: 20240214, end: 20240224

REACTIONS (1)
  - Myocardial necrosis marker increased [Recovering/Resolving]

NARRATIVE: CASE EVENT DATE: 20240226
